FAERS Safety Report 19124994 (Version 1)
Quarter: 2021Q2

REPORT INFORMATION
  Report Type: Spontaneous
  Country: US (occurrence: US)
  Receive Date: 20210413
  Receipt Date: 20210413
  Transmission Date: 20210717
  Serious: Yes (Other)
  Sender: FDA-Public Use
  Company Number: US-SA-2021SA118872

PATIENT
  Sex: Male

DRUGS (1)
  1. DUPIXENT [Suspect]
     Active Substance: DUPILUMAB
     Indication: DERMATITIS ATOPIC
     Route: 058
     Dates: start: 20210309

REACTIONS (6)
  - Eye pruritus [Unknown]
  - Skin fissures [Not Recovered/Not Resolved]
  - Therapeutic response decreased [Unknown]
  - Pruritus [Not Recovered/Not Resolved]
  - Glaucoma [Unknown]
  - Rash macular [Not Recovered/Not Resolved]
